FAERS Safety Report 9733684 (Version 1)
Quarter: 2013Q4

REPORT INFORMATION
  Report Type: Report from Study
  Country: BR (occurrence: BR)
  Receive Date: 20131205
  Receipt Date: 20131205
  Transmission Date: 20140711
  Serious: Yes (Death)
  Sender: FDA-Public Use
  Company Number: PHHY2013BR141451

PATIENT
  Sex: Female

DRUGS (12)
  1. EXELON PATCH [Suspect]
     Dosage: 13.3 MG, DAILY
     Route: 062
     Dates: start: 201310
  2. EXELON PATCH [Suspect]
     Dosage: 13.3 MG, DAILY
     Route: 062
     Dates: start: 20131105
  3. LEVOTHYROXINE SODIUM [Concomitant]
     Indication: HYPOTHYROIDISM
     Dosage: 100 MG, DAILY
     Route: 048
     Dates: end: 20131105
  4. CAPTOPRIL [Concomitant]
     Indication: HYPERTENSION
     Dosage: 25 MG, BID
     Route: 048
     Dates: end: 20131105
  5. CLOPIDOGREL [Concomitant]
     Indication: ANTICOAGULANT THERAPY
     Dosage: 75 MG, DAILY
     Route: 048
     Dates: start: 2011, end: 20131105
  6. DIGOXINE [Concomitant]
     Indication: HEART RATE IRREGULAR
     Dosage: 1 DF, DAILY
     Route: 048
     Dates: start: 2011, end: 20131105
  7. ARTROLIVE [Concomitant]
     Indication: OSTEOARTHRITIS
     Dosage: 1 DF, DAILY
     Route: 048
     Dates: start: 2010, end: 201310
  8. NEUTROFER [Concomitant]
     Indication: ANAEMIA
     Dosage: 2 DF, DAILY
     Route: 048
     Dates: start: 2010, end: 201310
  9. OMEPRAL//OMEPRAZOLE [Concomitant]
     Indication: CHOLELITHIASIS
     Dosage: 2 DF, DAILY
     Route: 048
     Dates: end: 20131105
  10. DOMPERIDONE [Concomitant]
     Indication: CHOLELITHIASIS
     Dosage: 10 MG, DAILY
     Route: 048
     Dates: end: 20131105
  11. ANTIBIOTICS [Concomitant]
     Indication: URINARY TRACT INFECTION
     Dosage: UNK
     Dates: start: 201310
  12. ANTIBIOTICS [Concomitant]
     Indication: PNEUMONIA
     Dosage: UNK UKN, UNK
     Dates: start: 201310

REACTIONS (1)
  - Pneumonia [Fatal]
